FAERS Safety Report 9911056 (Version 2)
Quarter: 2014Q1

REPORT INFORMATION
  Report Type: Spontaneous
  Country: US (occurrence: US)
  Receive Date: 20140219
  Receipt Date: 20140219
  Transmission Date: 20141002
  Serious: No
  Sender: FDA-Public Use
  Company Number: US-GILEAD-2012-0054504

PATIENT
  Age: 75 Year
  Sex: Female

DRUGS (10)
  1. LETAIRIS [Suspect]
     Indication: PULMONARY HYPERTENSION
     Dosage: 5 MG, UNK
     Route: 048
     Dates: start: 20120110, end: 20120312
  2. LETAIRIS [Suspect]
     Indication: CONNECTIVE TISSUE DISORDER
     Dosage: 10 MG, UNK
     Route: 048
     Dates: start: 20120313
  3. LETAIRIS [Suspect]
     Indication: SCLERODERMA
  4. NEXIUM                             /01479302/ [Concomitant]
  5. PRAVASTATIN [Concomitant]
  6. MULTIVITAMINS [Concomitant]
  7. SPIRONOLACTONE [Concomitant]
  8. ADCIRCA [Concomitant]
  9. DYAZIDE [Concomitant]
  10. COUMADINE [Concomitant]

REACTIONS (1)
  - Ageusia [Not Recovered/Not Resolved]
